FAERS Safety Report 6111318-9 (Version None)
Quarter: 2009Q1

REPORT INFORMATION
  Report Type: 
  Country: None (occurrence: None)
  Receive Date: 20090309
  Receipt Date: 20090225
  Transmission Date: 20090719
  Serious: Yes (Hospitalization)
  Sender: FDA-Public Use
  Company Number: DAV-AE-MTX-09-015

PATIENT
  Age: 55 Year
  Sex: Female

DRUGS (3)
  1. METHOTREXATE [Suspect]
     Indication: ARTHRITIS
     Dosage: 5 MG/WK ORALLY
     Route: 048
  2. CYCLOSPORINE [Concomitant]
  3. METHYLPREDNISOLONE 4MG TAB [Concomitant]

REACTIONS (3)
  - DYSPHONIA [None]
  - KAPOSI'S SARCOMA [None]
  - SYNOVITIS [None]
